FAERS Safety Report 9896815 (Version 2)
Quarter: 2014Q1

REPORT INFORMATION
  Report Type: Spontaneous
  Country: FR (occurrence: FR)
  Receive Date: 20140213
  Receipt Date: 20140303
  Transmission Date: 20141002
  Serious: Yes (Hospitalization)
  Sender: FDA-Public Use
  Company Number: FR-TEVA-460714ISR

PATIENT
  Age: 61 Year
  Sex: Female

DRUGS (6)
  1. PIROXICAM TEVA 20MG/1ML [Suspect]
     Indication: SPINAL DISORDER
     Dosage: 1 DOSAGE FORMS DAILY;
     Dates: start: 20130913, end: 20130913
  2. INDAPAMIDE MYLAN 1.5MG [Concomitant]
     Dosage: FOR SEVERAL YEARS
  3. PRAVASTATINE MYLAN 20MG [Concomitant]
     Dosage: FOR SEVERAL YEARS
  4. METFORMINE MYLAN 850MG [Concomitant]
     Dosage: FOR SEVERAL YEARS
  5. ALLOPURINOL MYLAN 100MG [Concomitant]
     Dosage: FOR SEVERAL YEARS
  6. TARKA [Concomitant]
     Dosage: FOR SEVERAL YEARS

REACTIONS (5)
  - Lobar pneumonia [Recovered/Resolved]
  - Intervertebral discitis [Recovered/Resolved with Sequelae]
  - Staphylococcal sepsis [Recovered/Resolved]
  - Suspected transmission of an infectious agent via product [Recovered/Resolved]
  - Pulmonary oedema [Recovered/Resolved]
